FAERS Safety Report 4283958-3 (Version None)
Quarter: 2004Q1

REPORT INFORMATION
  Report Type: 
  Country: None (occurrence: None)
  Receive Date: 20040202
  Receipt Date: 20040127
  Transmission Date: 20041129
  Serious: Yes (Death)
  Sender: FDA-Public Use
  Company Number: WAES 0401CHE00032

PATIENT
  Sex: Male

DRUGS (1)
  1. CANCIDAS [Suspect]
     Indication: FUNGAL INFECTION
     Route: 042
     Dates: start: 20020101, end: 20020101

REACTIONS (1)
  - DEATH [None]
